FAERS Safety Report 5172573-5 (Version None)
Quarter: 2006Q4

REPORT INFORMATION
  Report Type: 
  Country: None (occurrence: None)
  Receive Date: 20061205
  Receipt Date: 20061130
  Transmission Date: 20070319
  Serious: Yes (Hospitalization)
  Sender: FDA-Public Use
  Company Number: 227227

PATIENT
  Age: 50 Year
  Sex: Female

DRUGS (1)
  1. MABTHERA (RITUXIMAB)CONC FOR SOLUTION FOR INFUSION) [Suspect]
     Indication: RHEUMATOID ARTHRITIS
     Dosage: 1 G, INTRAVENOUS
     Route: 042
     Dates: start: 20060101, end: 20060101

REACTIONS (1)
  - LEUKOENCEPHALOPATHY [None]
